FAERS Safety Report 18259161 (Version 3)
Quarter: 2021Q1

REPORT INFORMATION
  Report Type: Spontaneous
  Country: US (occurrence: US)
  Receive Date: 20200911
  Receipt Date: 20210322
  Transmission Date: 20210419
  Serious: Yes (Hospitalization, Other)
  Sender: FDA-Public Use
  Company Number: US-GILEAD-2020-0494507

PATIENT
  Sex: Female
  Weight: 58.96 kg

DRUGS (47)
  1. TRUVADA [Suspect]
     Active Substance: EMTRICITABINE\TENOFOVIR DISOPROXIL FUMARATE
     Dosage: UNK
     Route: 048
     Dates: start: 200709, end: 200710
  2. CONSTULOSE [Concomitant]
     Active Substance: LACTULOSE
  3. DAPSONE. [Concomitant]
     Active Substance: DAPSONE
  4. DICLOFENAC SODIUM. [Concomitant]
     Active Substance: DICLOFENAC SODIUM
  5. HYDROCODONE/ACETAMINOPHEN [Concomitant]
     Active Substance: ACETAMINOPHEN\HYDROCODONE
  6. MEGESTROL [Concomitant]
     Active Substance: MEGESTROL
  7. TIVICAY [Concomitant]
     Active Substance: DOLUTEGRAVIR SODIUM
  8. EDURANT [Concomitant]
     Active Substance: RILPIVIRINE HYDROCHLORIDE
  9. TRUVADA [Suspect]
     Active Substance: EMTRICITABINE\TENOFOVIR DISOPROXIL FUMARATE
     Indication: HIV INFECTION
     Dosage: UNK
     Route: 048
     Dates: start: 20110906, end: 20180812
  10. ISENTRESS [Concomitant]
     Active Substance: RALTEGRAVIR POTASSIUM
  11. LORAZEPAM. [Concomitant]
     Active Substance: LORAZEPAM
  12. PENICILLIN VK [Concomitant]
     Active Substance: PENICILLIN V POTASSIUM
  13. TIZANIDINE. [Concomitant]
     Active Substance: TIZANIDINE
  14. KALETRA [Concomitant]
     Active Substance: LOPINAVIR\RITONAVIR
  15. COMPLERA [Suspect]
     Active Substance: EMTRICITABINE\RILPIVIRINE HYDROCHLORIDE\TENOFOVIR DISOPROXIL FUMARATE
     Dosage: UNK
     Route: 048
     Dates: start: 20120727, end: 20120827
  16. AMOXICILLIN. [Concomitant]
     Active Substance: AMOXICILLIN
  17. CLINDAMYCIN. [Concomitant]
     Active Substance: CLINDAMYCIN
  18. EPIVIR [Concomitant]
     Active Substance: LAMIVUDINE
  19. PRECARE [Concomitant]
  20. TRUVADA [Suspect]
     Active Substance: EMTRICITABINE\TENOFOVIR DISOPROXIL FUMARATE
     Dosage: UNK
     Route: 048
     Dates: start: 20100813, end: 20110518
  21. RETROVIR [Concomitant]
     Active Substance: ZIDOVUDINE
  22. DESCOVY [Concomitant]
     Active Substance: EMTRICITABINE\TENOFOVIR ALAFENAMIDE FUMARATE
  23. COMPLERA [Suspect]
     Active Substance: EMTRICITABINE\RILPIVIRINE HYDROCHLORIDE\TENOFOVIR DISOPROXIL FUMARATE
     Indication: HIV INFECTION
     Dosage: UNK
     Route: 048
     Dates: start: 20151005, end: 20160107
  24. CIPROFLOXACIN. [Concomitant]
     Active Substance: CIPROFLOXACIN
  25. GENTAMICIN. [Concomitant]
     Active Substance: GENTAMICIN
  26. IBUPROFEN. [Concomitant]
     Active Substance: IBUPROFEN
  27. MUPIROCIN. [Concomitant]
     Active Substance: MUPIROCIN
  28. TRIUMEQ [Concomitant]
     Active Substance: ABACAVIR SULFATE\DOLUTEGRAVIR SODIUM\LAMIVUDINE
  29. ZIAGEN [Concomitant]
     Active Substance: ABACAVIR SULFATE
  30. AZITHROMYCIN ANHYDROUS. [Concomitant]
     Active Substance: AZITHROMYCIN ANHYDROUS
  31. ISOSORB MONO [Concomitant]
     Active Substance: ISOSORBIDE MONONITRATE
  32. LABETALOL [Concomitant]
     Active Substance: LABETALOL\LABETALOL HYDROCHLORIDE
  33. METHOCARBAMOL. [Concomitant]
     Active Substance: METHOCARBAMOL
  34. NITROFURANTOIN. [Concomitant]
     Active Substance: NITROFURANTOIN
  35. PANTOPRAZOLE [Concomitant]
     Active Substance: PANTOPRAZOLE
  36. PREZCOBIX [Concomitant]
     Active Substance: COBICISTAT\DARUNAVIR ETHANOLATE
  37. PROMETHAZINE [Concomitant]
     Active Substance: PROMETHAZINE HYDROCHLORIDE
  38. LEVOFLOXACIN. [Concomitant]
     Active Substance: LEVOFLOXACIN
  39. OXYCODONE;PARACETAMOL [Concomitant]
     Active Substance: ACETAMINOPHEN\OXYCODONE HYDROCHLORIDE
  40. TRAMADOL. [Concomitant]
     Active Substance: TRAMADOL
  41. PREZISTA [Concomitant]
     Active Substance: DARUNAVIR ETHANOLATE
  42. COMBIVIR [Concomitant]
     Active Substance: LAMIVUDINE\ZIDOVUDINE
  43. ACETAMINOFEN + CODEINA [Concomitant]
  44. LACTULOSE. [Concomitant]
     Active Substance: LACTULOSE
  45. NORVIR [Concomitant]
     Active Substance: RITONAVIR
  46. PREDNISONE. [Concomitant]
     Active Substance: PREDNISONE
  47. CITALOPRAM [Concomitant]
     Active Substance: CITALOPRAM HYDROBROMIDE

REACTIONS (12)
  - Hyperkalaemia [Recovered/Resolved]
  - Anxiety [Not Recovered/Not Resolved]
  - End stage renal disease [Not Recovered/Not Resolved]
  - Pain [Not Recovered/Not Resolved]
  - Emotional distress [Not Recovered/Not Resolved]
  - Hypertension [Not Recovered/Not Resolved]
  - Hyperparathyroidism secondary [Recovered/Resolved]
  - Depression [Not Recovered/Not Resolved]
  - Pneumonia [Recovered/Resolved]
  - Renal failure [Unknown]
  - Anaemia [Not Recovered/Not Resolved]
  - Anhedonia [Unknown]

NARRATIVE: CASE EVENT DATE: 2016
